FAERS Safety Report 9745450 (Version 3)
Quarter: 2014Q1

REPORT INFORMATION
  Report Type: Spontaneous
  Country: DE (occurrence: DE)
  Receive Date: 20131211
  Receipt Date: 20140123
  Transmission Date: 20141002
  Serious: Yes (Death, Hospitalization, Other)
  Sender: FDA-Public Use
  Company Number: DE-PFIZER INC-2013182960

PATIENT
  Sex: 0

DRUGS (2)
  1. SUTENT [Suspect]
     Indication: METASTATIC RENAL CELL CARCINOMA
     Dosage: 50 MG, 1X/DAY
     Dates: start: 201303, end: 201303
  2. SUTENT [Suspect]
     Dosage: 12.5 MG, 2X/DAY
     Dates: start: 201303, end: 201304

REACTIONS (4)
  - Pneumonitis [Fatal]
  - Pneumocystis jirovecii infection [Fatal]
  - Dyspnoea [Unknown]
  - Cough [Unknown]
